FAERS Safety Report 16722460 (Version 1)
Quarter: 2019Q3

REPORT INFORMATION
  Report Type: Spontaneous
  Country: US (occurrence: US)
  Receive Date: 20190820
  Receipt Date: 20190820
  Transmission Date: 20191005
  Serious: Yes (Hospitalization, Other)
  Sender: FDA-Public Use
  Company Number: US-BIOMARINAP-US-2019-125275

PATIENT
  Age: 19 Year
  Sex: Male

DRUGS (1)
  1. ALDURAZYME [Suspect]
     Active Substance: LARONIDASE
     Indication: MUCOPOLYSACCHARIDOSIS I
     Dosage: UNK
     Route: 041
     Dates: start: 20170810

REACTIONS (6)
  - Fluid retention [Recovered/Resolved]
  - Pain [Recovering/Resolving]
  - Gait disturbance [Recovering/Resolving]
  - Central venous catheter removal [Unknown]
  - Bacterial infection [Unknown]
  - Back pain [Unknown]

NARRATIVE: CASE EVENT DATE: 20190728
